FAERS Safety Report 7201304-X (Version None)
Quarter: 2010Q4

REPORT INFORMATION
  Report Type: 
  Country: None (occurrence: None)
  Receive Date: 20101227
  Receipt Date: 20101227
  Transmission Date: 20110411
  Serious: Yes (Other)
  Sender: FDA-Public Use
  Company Number: None

PATIENT
  Age: 55 Year
  Sex: Female
  Weight: 48.9885 kg

DRUGS (1)
  1. HUMIRA [Suspect]
     Indication: CROHN'S DISEASE
     Dosage: ONE PRE FILLED PEN TWICE PER MONTH ID
     Route: 026
     Dates: start: 20100105, end: 20100422

REACTIONS (2)
  - ARTHRALGIA [None]
  - RASH [None]
